FAERS Safety Report 24139015 (Version 3)
Quarter: 2024Q4

REPORT INFORMATION
  Report Type: Report from Study
  Country: US (occurrence: US)
  Receive Date: 20240726
  Receipt Date: 20241128
  Transmission Date: 20250114
  Serious: Yes (Other)
  Sender: ACADIA PHARMACEUTICALS
  Company Number: US-ACADIA PHARMACEUTICALS INC.-ACA-2024-PIM-003211

PATIENT
  Sex: Male

DRUGS (2)
  1. NUPLAZID [Suspect]
     Active Substance: PIMAVANSERIN TARTRATE
     Indication: Parkinson^s disease psychosis
     Dosage: 34 MILLIGRAM, QD
     Route: 048
     Dates: start: 202309, end: 202405
  2. NUPLAZID [Suspect]
     Active Substance: PIMAVANSERIN TARTRATE
     Dosage: 34 MILLIGRAM, QD
     Route: 048
     Dates: start: 202409

REACTIONS (8)
  - Dementia with Lewy bodies [Unknown]
  - Hallucination [Unknown]
  - Electrocardiogram QT prolonged [Unknown]
  - Hallucination [Unknown]
  - Orthostatic hypertension [Unknown]
  - Abnormal dreams [Unknown]
  - Therapeutic product effect delayed [Unknown]
  - Drug ineffective [Unknown]
